FAERS Safety Report 4343553-4 (Version None)
Quarter: 2004Q2

REPORT INFORMATION
  Report Type: 
  Country: None (occurrence: None)
  Receive Date: 20040419
  Receipt Date: 20040405
  Transmission Date: 20050107
  Serious: Yes (Other)
  Sender: FDA-Public Use
  Company Number: ZONI001390

PATIENT
  Age: 42 Year
  Sex: Male

DRUGS (2)
  1. ZONEGRAN (ZONISAMIDE) [Suspect]
     Indication: CONVULSION
     Dosage: 4090 MG DAILY ORAL
     Route: 048
     Dates: start: 20031101
  2. VALPROIC ACID [Concomitant]

REACTIONS (1)
  - NEPHROLITHIASIS [None]
